FAERS Safety Report 19494459 (Version 7)
Quarter: 2023Q2

REPORT INFORMATION
  Report Type: Spontaneous
  Country: US (occurrence: US)
  Receive Date: 20210705
  Receipt Date: 20230504
  Transmission Date: 20230721
  Serious: No
  Sender: FDA-Public Use
  Company Number: US-PFIZER INC-2021376961

PATIENT
  Age: 62 Year
  Sex: Female

DRUGS (1)
  1. IBRANCE [Suspect]
     Active Substance: PALBOCICLIB
     Indication: Breast cancer stage IV
     Dosage: 125 MG
     Dates: start: 20230123

REACTIONS (7)
  - Gait inability [Unknown]
  - Fatigue [Unknown]
  - Nervousness [Unknown]
  - Emotional disorder [Unknown]
  - Confusional state [Unknown]
  - Emotional distress [Unknown]
  - Product dose omission in error [Unknown]
